FAERS Safety Report 7577260-1 (Version None)
Quarter: 2011Q2

REPORT INFORMATION
  Report Type: 
  Country: None (occurrence: None)
  Receive Date: 20110628
  Receipt Date: 20110623
  Transmission Date: 20111010
  Serious: Yes (Other)
  Sender: FDA-Public Use
  Company Number: GB-TEVA-288035ISR

PATIENT
  Age: 35 Year
  Sex: Male

DRUGS (5)
  1. CLOPIDOGREL [Suspect]
  2. CLOZAPINE [Suspect]
     Route: 048
     Dates: start: 20030423
  3. CLOZAPINE [Suspect]
     Indication: SCHIZOPHRENIA
     Route: 048
     Dates: start: 20001201
  4. ATENOLOL [Suspect]
     Route: 048
     Dates: start: 20030423
  5. ZUCLOPENTHIXOL [Suspect]
     Dates: start: 20030423

REACTIONS (5)
  - DYSPEPSIA [None]
  - MENTAL DISORDER [None]
  - VOMITING [None]
  - RETCHING [None]
  - OVERDOSE [None]
